FAERS Safety Report 8255555-6 (Version None)
Quarter: 2012Q2

REPORT INFORMATION
  Report Type: 
  Country: None (occurrence: None)
  Receive Date: 20120403
  Receipt Date: 20120329
  Transmission Date: 20120825
  Serious: Yes (Death, Hospitalization)
  Sender: FDA-Public Use
  Company Number: US-INCYTE CORPORATION-2012IN000485

PATIENT
  Sex: Male

DRUGS (5)
  1. LEVOTHYROXINE SODIUM [Concomitant]
     Dosage: 25 MCG, UNK
     Route: 048
  2. JAKAFI [Suspect]
     Indication: MYELOFIBROSIS
     Dosage: 15 MG, BID
     Route: 048
  3. JAKAFI [Suspect]
     Indication: MYELOID METAPLASIA
  4. ALLOPURINOL [Concomitant]
     Dosage: 300 MG, QD
     Route: 048
  5. MIRTAZAPINE [Concomitant]
     Dosage: 15 MG, UNK
     Route: 048

REACTIONS (4)
  - PLATELET COUNT DECREASED [None]
  - GENERAL PHYSICAL HEALTH DETERIORATION [None]
  - GAIT DISTURBANCE [None]
  - DEATH [None]
